FAERS Safety Report 6383079-X (Version None)
Quarter: 2009Q3

REPORT INFORMATION
  Report Type: 
  Country: None (occurrence: None)
  Receive Date: 20090928
  Receipt Date: 20090913
  Transmission Date: 20100115
  Serious: Yes (Other)
  Sender: FDA-Public Use
  Company Number: 2280705-2009-00013

PATIENT
  Sex: Male

DRUGS (1)
  1. ORAJEL MAXIMUM STRENGTH ORAL PAIN RELIEVER [Suspect]
     Indication: TOOTHACHE

REACTIONS (6)
  - GINGIVAL SWELLING [None]
  - HYPERSENSITIVITY [None]
  - JAW DISORDER [None]
  - PHARYNGEAL OEDEMA [None]
  - SWELLING [None]
  - SWOLLEN TONGUE [None]
